FAERS Safety Report 7462796-4 (Version None)
Quarter: 2011Q2

REPORT INFORMATION
  Report Type: 
  Country: None (occurrence: None)
  Receive Date: 20110506
  Receipt Date: 20110321
  Transmission Date: 20111010
  Serious: Yes (Hospitalization, Other)
  Sender: FDA-Public Use
  Company Number: US-BAYER-201011578NA

PATIENT
  Age: 21 Year
  Sex: Female
  Weight: 56.689 kg

DRUGS (22)
  1. HYOSCYAMINE [Concomitant]
     Dosage: 0.125 MG, UNK
  2. DIFFERIN [Concomitant]
  3. LEVSIN [Concomitant]
     Indication: ABDOMINAL PAIN
  4. ACCUTANE [Concomitant]
     Dosage: 60 MG, UNK
     Dates: start: 20050912, end: 20051201
  5. LEVBID [Concomitant]
     Indication: ABDOMINAL PAIN
     Dosage: UNK
     Dates: start: 20060101
  6. ZITHROMAX [Concomitant]
     Dosage: UNK
     Dates: start: 20050101
  7. CIPROFLOXACIN [Concomitant]
  8. BENTYL [Concomitant]
     Indication: ABDOMINAL PAIN
     Dosage: UNK
     Dates: start: 20040101, end: 20060101
  9. DROSPIRENONE AND ETHINYL ESTRADIOL [Suspect]
     Dosage: UNK
     Dates: start: 20100201
  10. YASMIN [Suspect]
     Indication: MENSTRUATION IRREGULAR
     Dosage: UNK
     Dates: start: 20050101, end: 20100201
  11. DICYCLOMINE [Concomitant]
     Dosage: 20 MG, UNK
  12. ESTROSTEP [Concomitant]
  13. YASMIN [Suspect]
     Indication: CONTRACEPTION
  14. AZITHROMYCIN [Concomitant]
     Dosage: UNK
     Dates: start: 20060101
  15. FOLIC ACID [Concomitant]
     Indication: SUPPLEMENTATION THERAPY
     Dosage: 1 MG, QD
     Dates: start: 20040101
  16. ACCUTANE [Concomitant]
     Indication: ACNE
     Dosage: 40 MG, UNK
     Dates: start: 20050101
  17. BACTRIM [Concomitant]
     Dosage: UNK UNK, PRN
  18. DEPAKOTE ER [Concomitant]
     Indication: CONVULSION
     Dosage: 500 MG, BID
     Dates: start: 20040101
  19. ACCUTANE [Concomitant]
     Dosage: 50 MG, UNK
     Dates: start: 20050531
  20. MULTI-VITAMIN [Concomitant]
  21. AKNE-MYCIN [ERYTHROMYCIN] [Concomitant]
  22. ACIPHEX [Concomitant]
     Dosage: 20 MG, UNK

REACTIONS (7)
  - GALLBLADDER INJURY [None]
  - CHOLECYSTITIS CHRONIC [None]
  - GALLBLADDER DISORDER [None]
  - DYSPEPSIA [None]
  - CHOLELITHIASIS [None]
  - BILIARY DYSKINESIA [None]
  - BILIARY COLIC [None]
